FAERS Safety Report 8615012-1 (Version None)
Quarter: 2012Q3

REPORT INFORMATION
  Report Type: 
  Country: None (occurrence: None)
  Receive Date: 20120814
  Receipt Date: 20120814
  Transmission Date: 20120928
  Serious: Yes (Hospitalization)
  Sender: FDA-Public Use
  Company Number: None

PATIENT
  Age: 87 Year
  Sex: Male
  Weight: 66.5 kg

DRUGS (1)
  1. GADOBENATE [Suspect]
     Indication: NUCLEAR MAGNETIC RESONANCE IMAGING BRAIN
     Dosage: 13 ML ONCE IV
     Route: 042
     Dates: start: 20120504, end: 20120504

REACTIONS (5)
  - PRURITUS [None]
  - FEELING ABNORMAL [None]
  - URTICARIA [None]
  - DIZZINESS [None]
  - CHEST DISCOMFORT [None]
